FAERS Safety Report 4784706-0 (Version None)
Quarter: 2005Q3

REPORT INFORMATION
  Report Type: 
  Country: None (occurrence: None)
  Receive Date: 20050929
  Receipt Date: 20050929
  Transmission Date: 20060218
  Serious: Yes (Life-Threatening, Hospitalization)
  Sender: FDA-Public Use
  Company Number: None

PATIENT
  Age: 79 Year
  Sex: Male
  Weight: 78 kg

DRUGS (9)
  1. SIMVASTATIN [Suspect]
     Indication: HYPERLIPIDAEMIA
     Dosage: 80,DAILY, ORAL
     Route: 048
     Dates: start: 20040120, end: 20050805
  2. METOPROLOL SUCCINATE [Concomitant]
  3. NUTRITION SUPL ENSURE/VANILLA PWD [Concomitant]
  4. CYPROHEPTADINE HCL [Concomitant]
  5. CLOPIDOGREL BISULFATE [Concomitant]
  6. DISOPYRAMIDE PHOSPHATE [Concomitant]
  7. METOPROLOL TARTRATE [Concomitant]
  8. LACTULOSE [Concomitant]
  9. SENNOSIDES [Concomitant]

REACTIONS (1)
  - RHABDOMYOLYSIS [None]
